FAERS Safety Report 6692174-7 (Version None)
Quarter: 2010Q2

REPORT INFORMATION
  Report Type: 
  Country: None (occurrence: None)
  Receive Date: 20100422
  Receipt Date: 20100217
  Transmission Date: 20101027
  Serious: No
  Sender: FDA-Public Use
  Company Number: US-ASTRAZENECA-2010SE03403

PATIENT
  Age: 69 Year
  Sex: Female

DRUGS (1)
  1. TOPROL-XL [Suspect]
     Indication: HEART RATE IRREGULAR
     Route: 048
     Dates: start: 20100101, end: 20100106

REACTIONS (3)
  - FLUID RETENTION [None]
  - VISION BLURRED [None]
  - WEIGHT INCREASED [None]
